FAERS Safety Report 12072815 (Version 1)
Quarter: 2016Q1

REPORT INFORMATION
  Report Type: Spontaneous
  Country: US (occurrence: US)
  Receive Date: 20160212
  Receipt Date: 20160212
  Transmission Date: 20160526
  Serious: No
  Sender: FDA-Public Use
  Company Number: US-PFIZER INC-2016025406

PATIENT
  Age: 65 Year
  Sex: Female
  Weight: 83.91 kg

DRUGS (3)
  1. CELEBREX [Suspect]
     Active Substance: CELECOXIB
     Indication: LIGAMENT INJURY
     Dosage: 200 MG, 1X/DAY
     Route: 048
  2. ARMOUR THYROID [Concomitant]
     Active Substance: THYROID, PORCINE
     Indication: HYPOTHYROIDISM
     Dosage: 1 DF, DAILY
  3. CALCIUM MAGNESIUM [Concomitant]
     Active Substance: CALCIUM\MAGNESIUM
     Indication: VITAMIN SUPPLEMENTATION
     Dosage: UNK

REACTIONS (5)
  - Sleep disorder [Unknown]
  - Product use issue [Unknown]
  - Insomnia [Unknown]
  - Blood pressure increased [Unknown]
  - Arthralgia [Recovering/Resolving]
